FAERS Safety Report 7111530-6 (Version None)
Quarter: 2010Q4

REPORT INFORMATION
  Report Type: 
  Country: None (occurrence: None)
  Receive Date: 20101118
  Receipt Date: 20101007
  Transmission Date: 20110411
  Serious: Yes (Hospitalization, Other)
  Sender: FDA-Public Use
  Company Number: US-BAXTER-2009BH014527

PATIENT
  Age: 41 Year
  Sex: Female
  Weight: 174 kg

DRUGS (8)
  1. HEPARIN SODIUM INJECTION [Suspect]
     Indication: THROMBOSIS PROPHYLAXIS
     Route: 058
     Dates: start: 20070905, end: 20070913
  2. HEPARIN SODIUM INJECTION [Suspect]
     Indication: DEEP VEIN THROMBOSIS
     Route: 058
     Dates: start: 20070905, end: 20070913
  3. HEPARIN SODIUM INJECTION [Suspect]
     Route: 042
     Dates: start: 20070928, end: 20070928
  4. HEPARIN SODIUM INJECTION [Suspect]
     Route: 042
     Dates: start: 20070928, end: 20070928
  5. HEPARIN SODIUM 1,000 UNITS AND SODIUM CHLORIDE 0.9% [Suspect]
     Indication: DEEP VEIN THROMBOSIS
     Route: 042
     Dates: start: 20070928, end: 20070928
  6. ZOLOFT [Concomitant]
     Indication: DEPRESSION
     Route: 065
  7. PERCOCET [Concomitant]
     Indication: PRODUCT USED FOR UNKNOWN INDICATION
     Route: 065
  8. COLACE [Concomitant]
     Indication: PRODUCT USED FOR UNKNOWN INDICATION
     Route: 065

REACTIONS (13)
  - CHEST DISCOMFORT [None]
  - DEEP VEIN THROMBOSIS [None]
  - ELECTROCARDIOGRAM ST SEGMENT ABNORMAL [None]
  - FLUSHING [None]
  - HYPERHIDROSIS [None]
  - KLEBSIELLA BACTERAEMIA [None]
  - NODAL ARRHYTHMIA [None]
  - PLATELET COUNT DECREASED [None]
  - PULMONARY EMBOLISM [None]
  - RESPIRATORY ARREST [None]
  - STAPHYLOCOCCAL BACTERAEMIA [None]
  - UNRESPONSIVE TO STIMULI [None]
  - VOMITING [None]
